FAERS Safety Report 9273197 (Version 1)
Quarter: 2013Q2

REPORT INFORMATION
  Report Type: Spontaneous
  Country: US (occurrence: US)
  Receive Date: 20130506
  Receipt Date: 20130506
  Transmission Date: 20140414
  Serious: Yes (Other)
  Sender: FDA-Public Use
  Company Number: US-TEVA-402969USA

PATIENT
  Sex: 0

DRUGS (1)
  1. AMLODIPINE W/BENAZEPRIL [Suspect]
     Dosage: 10 MG/20 MG

REACTIONS (1)
  - Coeliac disease [Unknown]
